FAERS Safety Report 16399304 (Version 1)
Quarter: 2019Q2

REPORT INFORMATION
  Report Type: Spontaneous
  Country: US (occurrence: US)
  Receive Date: 20190501
  Receipt Date: 20190501
  Transmission Date: 20190711
  Serious: No
  Sender: FDA-Public Use
  Company Number: None

PATIENT
  Age: 66 Year
  Sex: Female

DRUGS (1)
  1. AFINITOR [Suspect]
     Active Substance: EVEROLIMUS
     Route: 048

REACTIONS (5)
  - Constipation [None]
  - Foot fracture [None]
  - Red blood cell count decreased [None]
  - Stress fracture [None]
  - Therapeutic product effect decreased [None]

NARRATIVE: CASE EVENT DATE: 20190501
